FAERS Safety Report 21626034 (Version 3)
Quarter: 2022Q4

REPORT INFORMATION
  Report Type: Report from Study
  Country: US (occurrence: US)
  Receive Date: 20221122
  Receipt Date: 20221223
  Transmission Date: 20230112
  Serious: No
  Sender: FDA-Public Use
  Company Number: US-002147023-NVSC2022US179477

PATIENT
  Sex: Female

DRUGS (1)
  1. ENTRESTO [Suspect]
     Active Substance: SACUBITRIL\VALSARTAN
     Indication: Product used for unknown indication
     Dosage: UNK
     Route: 065

REACTIONS (5)
  - Nasopharyngitis [Recovering/Resolving]
  - Ear discomfort [Unknown]
  - Impaired healing [Not Recovered/Not Resolved]
  - Weight bearing difficulty [Unknown]
  - Cough [Recovering/Resolving]
